FAERS Safety Report 7783462-1 (Version None)
Quarter: 2011Q3

REPORT INFORMATION
  Report Type: 
  Country: None (occurrence: None)
  Receive Date: 20110928
  Receipt Date: 20110919
  Transmission Date: 20111222
  Serious: Yes (Hospitalization)
  Sender: FDA-Public Use
  Company Number: SE-BAXTER-2011BH026292

PATIENT
  Sex: Female

DRUGS (4)
  1. CYCLOPHOSPHAMIDE [Suspect]
     Indication: MULTIPLE MYELOMA
     Route: 042
     Dates: start: 20110705, end: 20110705
  2. PREDNISONE [Suspect]
     Indication: MULTIPLE MYELOMA
     Route: 048
  3. FUROSEMIDE [Suspect]
     Indication: OEDEMA
     Route: 048
     Dates: start: 20110706, end: 20110706
  4. THALIDOMIDE [Concomitant]
     Indication: PRODUCT USED FOR UNKNOWN INDICATION
     Route: 048

REACTIONS (6)
  - RESPIRATORY TRACT INFECTION [None]
  - VOMITING [None]
  - PYREXIA [None]
  - RASH [None]
  - NAUSEA [None]
  - OEDEMA PERIPHERAL [None]
